FAERS Safety Report 8523303-8 (Version None)
Quarter: 2012Q3

REPORT INFORMATION
  Report Type: 
  Country: None (occurrence: None)
  Receive Date: 20120713
  Receipt Date: 20120713
  Transmission Date: 20120928
  Serious: Yes (Hospitalization)
  Sender: FDA-Public Use
  Company Number: None

PATIENT
  Sex: Male
  Weight: 79 kg

DRUGS (5)
  1. CELLCEPT [Suspect]
     Indication: RENAL TRANSPLANT
     Dosage: 1,000 MG BID PO
     Route: 048
     Dates: start: 20120525
  2. ALENTUZUMAB [Concomitant]
  3. PREDNISONE [Concomitant]
  4. SOLU-MEDROL [Concomitant]
  5. NULOJIX [Suspect]
     Indication: RENAL TRANSPLANT
     Dosage: 841 MG Q 4 WEEKS IV
     Route: 042
     Dates: start: 20120621

REACTIONS (5)
  - ABDOMINAL PAIN [None]
  - PYREXIA [None]
  - LEUKOCYTOSIS [None]
  - VOMITING [None]
  - NAUSEA [None]
